FAERS Safety Report 11253359 (Version 1)
Quarter: 2015Q3

REPORT INFORMATION
  Report Type: Spontaneous
  Country: DE (occurrence: None)
  Receive Date: 20150707
  Receipt Date: 20150707
  Transmission Date: 20151125
  Serious: Yes (Congenital Anomaly)
  Sender: FDA-Public Use
  Company Number: CO-PL-DE-2015-116

PATIENT
  Age: 1 Day
  Sex: Male

DRUGS (2)
  1. QUENSYL [Suspect]
     Active Substance: HYDROXYCHLOROQUINE
     Indication: MATERNAL EXPOSURE TIMING UNSPECIFIED
     Route: 064
     Dates: start: 20140317, end: 20141209
  2. SULFASALAZINE DELAYED-RELEASE [Suspect]
     Active Substance: SULFASALAZINE
     Indication: MATERNAL EXPOSURE TIMING UNSPECIFIED
     Dosage: 1 IN 6 HR,
     Route: 064
     Dates: start: 20140317, end: 20141209

REACTIONS (2)
  - Maternal drugs affecting foetus [None]
  - Talipes [None]

NARRATIVE: CASE EVENT DATE: 20141209
